FAERS Safety Report 9531198 (Version 1)
Quarter: 2013Q2

REPORT INFORMATION
  Report Type: Spontaneous
  Country: US (occurrence: None)
  Receive Date: 20130418
  Receipt Date: 20130418
  Transmission Date: 20140414
  Serious: Yes (Other)
  Sender: FDA-Public Use
  Company Number: 1301USA002566

PATIENT
  Age: 25 Year
  Sex: Male

DRUGS (5)
  1. SINGULAIR (MONTELUKAST SODIUM) TABLET [Suspect]
     Indication: ASTHMA
     Route: 048
  2. SINGULAIR (MONTELUKAST SODIUM) TABLET [Suspect]
     Indication: RHINITIS ALLERGIC
     Route: 048
  3. NASACORT [Suspect]
     Route: 045
  4. BRICANYL [Suspect]
     Indication: RESPIRATORY DISORDER
  5. SYMBICORT (BUDESONIDE W/ FORMOTEROL FUMARATE) [Suspect]
     Dosage: 1 INHALATION BID
     Route: 055

REACTIONS (3)
  - Agitation [None]
  - Aggression [None]
  - Insomnia [None]
